FAERS Safety Report 5971427-1 (Version None)
Quarter: 2008Q4

REPORT INFORMATION
  Report Type: 
  Country: None (occurrence: None)
  Receive Date: 20081130
  Receipt Date: 20081125
  Transmission Date: 20090506
  Serious: Yes (Death, Other)
  Sender: FDA-Public Use
  Company Number: NO-PFIZER INC-2008100021

PATIENT
  Sex: Female

DRUGS (1)
  1. CYTOTEC [Suspect]
     Indication: LABOUR INDUCTION
     Route: 048

REACTIONS (2)
  - CARDIAC FAILURE ACUTE [None]
  - DRUG INEFFECTIVE FOR UNAPPROVED INDICATION [None]
